FAERS Safety Report 6181997-9 (Version None)
Quarter: 2009Q2

REPORT INFORMATION
  Report Type: 
  Country: None (occurrence: None)
  Receive Date: 20090505
  Receipt Date: 20090420
  Transmission Date: 20091009
  Serious: Yes (Death)
  Sender: FDA-Public Use
  Company Number: AE2009-057

PATIENT
  Age: 30 Year
  Sex: Male

DRUGS (12)
  1. FAZACLO ODT [Suspect]
     Indication: SCHIZOPHRENIA
     Dosage: 350 MG QHS PO
     Route: 048
     Dates: start: 20060719, end: 20090321
  2. PRILOSEC [Concomitant]
  3. ATIVAN [Concomitant]
  4. KLONOPIN [Concomitant]
  5. SINEMET [Concomitant]
  6. COLACE [Concomitant]
  7. BENADRYL [Concomitant]
  8. VITAMIN B6 [Concomitant]
  9. MULTI-VITAMIN [Concomitant]
  10. METAMUCIL [Concomitant]
  11. ACETAMINOPHEN [Concomitant]
  12. SELEGILINE [Concomitant]

REACTIONS (2)
  - ASPHYXIA [None]
  - COMPLETED SUICIDE [None]
